FAERS Safety Report 4603307-8 (Version None)
Quarter: 2005Q1

REPORT INFORMATION
  Report Type: 
  Country: None (occurrence: None)
  Receive Date: 20050307
  Receipt Date: 20050301
  Transmission Date: 20050727
  Serious: Yes (Hospitalization)
  Sender: FDA-Public Use
  Company Number: 200510509GDS

PATIENT
  Age: 10 Month
  Sex: Female
  Weight: 6 kg

DRUGS (7)
  1. N-ACETYL-P-AMINOPHENOL (APAP) (PARACETAMOL) [Suspect]
     Indication: PYREXIA
     Dosage: SEE IMAGE
  2. N-ACETYL-P-AMINOPHENOL (APAP) (PARACETAMOL) [Suspect]
     Indication: PYREXIA
     Dosage: SEE IMAGE
  3. KETOPROFEN [Suspect]
     Indication: PYREXIA
     Dosage: SEE IMAGE
     Route: 042
  4. KETOPROFEN [Suspect]
     Indication: PYREXIA
     Dosage: SEE IMAGE
     Route: 042
  5. IBUPROFEN [Suspect]
     Indication: PYREXIA
     Dosage: 60 MG, TOTAL DAILY
  6. ANTIPYRETICS [Concomitant]
  7. OTHER DRUGS (NOS) [Concomitant]

REACTIONS (18)
  - ACTIVATED PARTIAL THROMBOPLASTIN TIME PROLONGED [None]
  - COUGH [None]
  - DECREASED ACTIVITY [None]
  - DRUG TOXICITY [None]
  - GALLBLADDER DISORDER [None]
  - HEPATIC FAILURE [None]
  - HEPATIC NECROSIS [None]
  - HEPATOMEGALY [None]
  - LETHARGY [None]
  - LEUKOCYTOSIS [None]
  - METABOLIC ACIDOSIS [None]
  - METABOLIC DISORDER [None]
  - PROTHROMBIN TIME PROLONGED [None]
  - PYREXIA [None]
  - RHINORRHOEA [None]
  - SHIFT TO THE LEFT [None]
  - TACHYPNOEA [None]
  - VOMITING [None]
